FAERS Safety Report 23255101 (Version 1)
Quarter: 2023Q4

REPORT INFORMATION
  Report Type: Spontaneous
  Country: US (occurrence: US)
  Receive Date: 20231203
  Receipt Date: 20231203
  Transmission Date: 20240110
  Serious: No
  Sender: FDA-Public Use
  Company Number: US-AMNEAL PHARMACEUTICALS-2023-AMRX-01079

PATIENT
  Sex: Female
  Weight: 63.039 kg

DRUGS (2)
  1. ISOTRETINOIN [Suspect]
     Active Substance: ISOTRETINOIN
     Indication: Acne
     Dosage: 30 MG CAPSULE, 1 /DAY
     Route: 065
     Dates: start: 20230131, end: 20230324
  2. NUVARING [Concomitant]
     Active Substance: ETHINYL ESTRADIOL\ETONOGESTREL
     Indication: Contraception
     Dosage: UNK
     Route: 065
     Dates: start: 20230131, end: 20230324

REACTIONS (2)
  - Fatigue [Recovering/Resolving]
  - Drug intolerance [Recovering/Resolving]
